FAERS Safety Report 5931349-9 (Version None)
Quarter: 2008Q4

REPORT INFORMATION
  Report Type: 
  Country: None (occurrence: None)
  Receive Date: 20081009
  Receipt Date: 20080714
  Transmission Date: 20090506
  Serious: Yes (Disabling, Other)
  Sender: FDA-Public Use
  Company Number: PHEH2008US05778

PATIENT
  Age: 53 Year
  Sex: Female
  Weight: 81.2 kg

DRUGS (2)
  1. ZOMETA [Suspect]
     Indication: OSTEOPOROSIS
     Dosage: 4 MG, ONCE/SINGEL, INFUSION
     Dates: start: 20080612, end: 20080612
  2. FEMARA (LETROZOLE) TABLE [Concomitant]

REACTIONS (4)
  - ARTHRALGIA [None]
  - INFLUENZA LIKE ILLNESS [None]
  - MYALGIA [None]
  - PAIN [None]
